FAERS Safety Report 4842852-7 (Version None)
Quarter: 2005Q4

REPORT INFORMATION
  Report Type: 
  Country: None (occurrence: None)
  Receive Date: 20051130
  Receipt Date: 20051117
  Transmission Date: 20060501
  Serious: Yes (Life-Threatening, Other)
  Sender: FDA-Public Use
  Company Number: 2005142526

PATIENT
  Age: 61 Year
  Sex: Female
  Weight: 72 kg

DRUGS (2)
  1. SOLU-MEDROL [Suspect]
     Indication: CHEMOTHERAPY
     Dosage: 125 MG (40 MG, 1/D), INTRAVENOUS
     Route: 042
     Dates: start: 20051007
  2. TAXOTERE [Concomitant]

REACTIONS (2)
  - HYPOTENSION [None]
  - TACHYCARDIA [None]
